FAERS Safety Report 23346856 (Version 1)
Quarter: 2023Q4

REPORT INFORMATION
  Report Type: Spontaneous
  Country: CH (occurrence: CH)
  Receive Date: 20231228
  Receipt Date: 20231228
  Transmission Date: 20240109
  Serious: Yes (Other)
  Sender: FDA-Public Use
  Company Number: CH-AMGEN-CHESP2023230594

PATIENT

DRUGS (1)
  1. ADALIMUMAB [Suspect]
     Active Substance: ADALIMUMAB\ISOPROPYL ALCOHOL
     Indication: Cardiac sarcoidosis
     Dosage: 40 MILLIGRAM, Q2WK
     Route: 058

REACTIONS (3)
  - Cardiac sarcoidosis [Unknown]
  - Adverse drug reaction [Unknown]
  - Off label use [Unknown]
